FAERS Safety Report 20058457 (Version 1)
Quarter: 2021Q4

REPORT INFORMATION
  Report Type: Spontaneous
  Country: US (occurrence: None)
  Receive Date: 20211110
  Receipt Date: 20211110
  Transmission Date: 20220303
  Serious: Yes (Other)
  Sender: FDA-Public Use
  Company Number: None

PATIENT
  Sex: Male
  Weight: 76.79 kg

DRUGS (1)
  1. ERLEADA [Suspect]
     Active Substance: APALUTAMIDE
     Indication: Cerebral infarction
     Dosage: FREQUENCY : DAILY;?
     Route: 048
     Dates: start: 20210724, end: 20211110

REACTIONS (1)
  - Disease progression [None]
